FAERS Safety Report 9292295 (Version 6)
Quarter: 2014Q1

REPORT INFORMATION
  Report Type: Spontaneous
  Country: GB (occurrence: GB)
  Receive Date: 20130516
  Receipt Date: 20140121
  Transmission Date: 20141002
  Serious: Yes (Death, Hospitalization, Other)
  Sender: FDA-Public Use
  Company Number: PHFR2013GB002807

PATIENT
  Age: 75 Year
  Sex: Female

DRUGS (8)
  1. CLOZARIL [Suspect]
     Indication: SCHIZOPHRENIA, PARANOID TYPE
     Dosage: UNK
     Route: 048
     Dates: start: 20050922, end: 20130510
  2. CLOZARIL [Suspect]
     Dosage: 150 MG (50 MG MORNING AND 100 MG NIGHT), UNK
  3. ADCAL [Concomitant]
     Dosage: 1 TABLET, BID
     Route: 048
     Dates: start: 20130513
  4. ASPIRIN [Concomitant]
     Dosage: 75 MG, UNK
     Route: 048
  5. CITALOPRAM [Concomitant]
     Dosage: 20 MG, UNK
     Route: 048
  6. LAXIDO [Concomitant]
     Dosage: 1 SACHET, MORNING
     Route: 048
  7. PARACETAMOL [Concomitant]
     Dosage: 1 G (0.5-1 G,EVERY 4-6 HOURS), UNK
  8. SODIUM VALPROATE [Concomitant]
     Dosage: 300 MG, BID
     Route: 048

REACTIONS (11)
  - Asthenia [Fatal]
  - Fall [Recovered/Resolved with Sequelae]
  - Vascular dementia [Not Recovered/Not Resolved]
  - Head injury [Unknown]
  - Pneumonia [Recovered/Resolved]
  - White blood cell count increased [Unknown]
  - Transient ischaemic attack [Unknown]
  - Arthralgia [Unknown]
  - Staphylococcal infection [Unknown]
  - Pleural effusion [Unknown]
  - Convulsion [Unknown]
